FAERS Safety Report 24561076 (Version 1)
Quarter: 2024Q4

REPORT INFORMATION
  Report Type: Spontaneous
  Country: FR (occurrence: FR)
  Receive Date: 20241029
  Receipt Date: 20241029
  Transmission Date: 20250115
  Serious: Yes (Congenital Anomaly, Other)
  Sender: AUROBINDO
  Company Number: FR-AFSSAPS-AVMP2024000279

PATIENT
  Age: 23 Year
  Sex: Female

DRUGS (2)
  1. TRAMADOL [Suspect]
     Active Substance: TRAMADOL
     Indication: Product used for unknown indication
     Dosage: 2200 MILLIGRAM/HOUR, DAILY
     Route: 048
     Dates: start: 2022
  2. Temesta [Concomitant]
     Indication: Product used for unknown indication
     Dosage: 2.5 MILLIGRAM, DAILY
     Route: 048
     Dates: start: 202306

REACTIONS (4)
  - Foetal growth restriction [Unknown]
  - Drug use disorder [Unknown]
  - Generalised tonic-clonic seizure [Recovered/Resolved]
  - Small for dates baby [Unknown]

NARRATIVE: CASE EVENT DATE: 20220101
